FAERS Safety Report 4726380-5 (Version None)
Quarter: 2005Q3

REPORT INFORMATION
  Report Type: 
  Country: None (occurrence: None)
  Receive Date: 20050727
  Receipt Date: 20050711
  Transmission Date: 20060218
  Serious: Yes (Other)
  Sender: FDA-Public Use
  Company Number: TRP_0173_2005

PATIENT
  Age: 38 Year
  Sex: Female
  Weight: 128.368 kg

DRUGS (11)
  1. RIBASPHERE [Suspect]
     Indication: HEPATITIS C
     Dosage: DF PO
     Route: 048
     Dates: start: 20050201
  2. PEG-INTRON [Suspect]
     Indication: HEPATITIS C
     Dosage: DF SC
     Route: 058
     Dates: start: 20050201
  3. ADVAIR DISKUS 100/50 [Concomitant]
  4. CLARINEX [Concomitant]
  5. DARVOCET-N 100 [Concomitant]
  6. LISINOPRIL [Concomitant]
  7. METFORMIN HCL [Concomitant]
  8. MUCINEX [Concomitant]
  9. PAXIL [Concomitant]
  10. SINGULAIR ^DIECKMANN^ [Concomitant]
  11. XANAX [Concomitant]

REACTIONS (2)
  - BLOOD GLUCOSE INCREASED [None]
  - PULMONARY OEDEMA [None]
